FAERS Safety Report 17591978 (Version 1)
Quarter: 2020Q1

REPORT INFORMATION
  Report Type: Spontaneous
  Country: US (occurrence: US)
  Receive Date: 20200327
  Receipt Date: 20200327
  Transmission Date: 20200409
  Serious: No
  Sender: FDA-Public Use
  Company Number: US-TOPROL ACQUISITION LLC-2019-TOP-001228

PATIENT
  Sex: Male
  Weight: 96.15 kg

DRUGS (6)
  1. LISINOPRIL. [Concomitant]
     Active Substance: LISINOPRIL
     Indication: PRODUCT USED FOR UNKNOWN INDICATION
     Dosage: 2.5 MG, QD
  2. AMLODIPINE [Concomitant]
     Active Substance: AMLODIPINE BESYLATE
     Dosage: 5 MG, QD
  3. TRESIBA [Concomitant]
     Active Substance: INSULIN DEGLUDEC
  4. GABAPENTIN. [Concomitant]
     Active Substance: GABAPENTIN
     Indication: FAMILIAL TREMOR
     Dosage: 100 MG, TID
  5. METOPROLOL SUCCINATE. [Suspect]
     Active Substance: METOPROLOL SUCCINATE
     Indication: HYPERTENSION
     Dosage: 50 MG, BID
     Route: 048
  6. BYDUREON BCISE [Concomitant]
     Active Substance: EXENATIDE
     Indication: BLOOD GLUCOSE INCREASED
     Dosage: 2 MG, WEEKLY
     Route: 058
     Dates: start: 201902

REACTIONS (1)
  - Inappropriate schedule of product administration [Unknown]
